FAERS Safety Report 9305055 (Version 2)
Quarter: 2013Q2

REPORT INFORMATION
  Report Type: Spontaneous
  Country: US (occurrence: US)
  Receive Date: 20130523
  Receipt Date: 20130619
  Transmission Date: 20140414
  Serious: Yes (Hospitalization)
  Sender: FDA-Public Use
  Company Number: US-009507513-1305USA010603

PATIENT
  Sex: Male

DRUGS (1)
  1. JANUVIA [Suspect]
     Indication: BLOOD GLUCOSE ABNORMAL
     Dosage: 25 MG, UNK
     Route: 048

REACTIONS (1)
  - Glomerular filtration rate decreased [Recovered/Resolved]
